FAERS Safety Report 20245289 (Version 2)
Quarter: 2021Q4

REPORT INFORMATION
  Report Type: Spontaneous
  Country: US (occurrence: US)
  Receive Date: 20211229
  Receipt Date: 20211230
  Transmission Date: 20220303
  Serious: No
  Sender: FDA-Public Use
  Company Number: US-BIOVITRUM-2021US10524

PATIENT
  Age: 1 Year
  Sex: Female

DRUGS (1)
  1. KINERET [Suspect]
     Active Substance: ANAKINRA
     Indication: Still^s disease
     Dosage: 100MG/0.67ML
     Route: 058
     Dates: start: 20210416, end: 20211217

REACTIONS (11)
  - Still^s disease [Unknown]
  - Condition aggravated [Unknown]
  - Nasopharyngitis [Unknown]
  - Loss of personal independence in daily activities [Unknown]
  - Pyrexia [Unknown]
  - Arthralgia [Unknown]
  - Musculoskeletal stiffness [Unknown]
  - White blood cell count increased [Unknown]
  - Blood test abnormal [Unknown]
  - Product dose omission issue [Unknown]
  - Off label use [Recovered/Resolved]

NARRATIVE: CASE EVENT DATE: 20210416
